FAERS Safety Report 9272984 (Version 1)
Quarter: 2013Q2

REPORT INFORMATION
  Report Type: Report from Study
  Country: US (occurrence: US)
  Receive Date: 20130506
  Receipt Date: 20130506
  Transmission Date: 20140414
  Serious: Yes (Hospitalization)
  Sender: FDA-Public Use
  Company Number: PHEH2013US005377

PATIENT
  Age: 35 Year
  Sex: Female
  Weight: 116.8 kg

DRUGS (10)
  1. GILENYA [Suspect]
     Indication: RELAPSING-REMITTING MULTIPLE SCLEROSIS
     Dosage: 0.5 MG, QD
     Route: 048
     Dates: start: 20130228
  2. LIPITOR [Concomitant]
     Dosage: 40 MG DAILY
  3. TOPAMAX [Concomitant]
     Dosage: 50 MG, UNK
  4. WELLBUTRIN [Concomitant]
     Dosage: 200 MG, BID
     Route: 048
  5. CYMBALTA [Concomitant]
     Dosage: 60 MG, DAILY
  6. LOESTRIN [Concomitant]
  7. PROPRANOLOL [Concomitant]
  8. INDERAL [Concomitant]
     Dosage: 80 MG, DAILY
  9. KLONOPIN [Concomitant]
     Dosage: 0.5 MG, DAILY
  10. MAGNESIUM GLUCONATE [Concomitant]
     Dosage: 250 MG, UNK

REACTIONS (3)
  - Fatigue [Not Recovered/Not Resolved]
  - Dizziness [Not Recovered/Not Resolved]
  - Nausea [Not Recovered/Not Resolved]
